FAERS Safety Report 15828496 (Version 1)
Quarter: 2019Q1

REPORT INFORMATION
  Report Type: Spontaneous
  Country: US (occurrence: US)
  Receive Date: 20190115
  Receipt Date: 20190115
  Transmission Date: 20190417
  Serious: No
  Sender: FDA-Public Use
  Company Number: US-ALLERGAN-1811984US

PATIENT
  Age: 65 Year
  Sex: Female
  Weight: 59.86 kg

DRUGS (4)
  1. LACRILUBE [Concomitant]
     Indication: DRY EYE
     Dosage: UNK
     Route: 047
  2. ENBREL [Concomitant]
     Active Substance: ETANERCEPT
     Indication: AUTOIMMUNE DISORDER
     Dosage: UNK
     Route: 042
  3. RESTASIS [Suspect]
     Active Substance: CYCLOSPORINE
     Indication: DRY EYE
     Dosage: 2 GTT, BID
     Route: 047
     Dates: start: 20180215
  4. SYSTANE BALANCE [Concomitant]
     Active Substance: PROPYLENE GLYCOL
     Indication: DRY EYE
     Dosage: UNK
     Route: 047

REACTIONS (3)
  - Product dose omission [Unknown]
  - Accidental exposure to product [Unknown]
  - Product container issue [Unknown]
